FAERS Safety Report 8189020-1 (Version None)
Quarter: 2012Q1

REPORT INFORMATION
  Report Type: 
  Country: None (occurrence: None)
  Receive Date: 20120307
  Receipt Date: 20120229
  Transmission Date: 20120608
  Serious: Yes (Hospitalization)
  Sender: FDA-Public Use
  Company Number: US-BIOGENIDEC-2011BI048688

PATIENT
  Age: 56 Year
  Sex: Male

DRUGS (10)
  1. PERCOCET [Concomitant]
  2. TYSABRI [Suspect]
     Indication: MULTIPLE SCLEROSIS
     Route: 042
     Dates: start: 20091029, end: 20111117
  3. CELEBREX [Concomitant]
  4. OXYBUTYNIN [Concomitant]
  5. TRAZODONE HCL [Concomitant]
  6. AMBIEN [Concomitant]
  7. VALIUM [Concomitant]
  8. FENTANYL [Concomitant]
     Route: 062
  9. LISINOPRIL [Concomitant]
  10. VESICARE [Concomitant]

REACTIONS (3)
  - ADVERSE REACTION [None]
  - MULTIPLE SCLEROSIS RELAPSE [None]
  - ESCHERICHIA URINARY TRACT INFECTION [None]
